FAERS Safety Report 8152555-1 (Version None)
Quarter: 2012Q1

REPORT INFORMATION
  Report Type: 
  Country: None (occurrence: None)
  Receive Date: 20120221
  Receipt Date: 20120215
  Transmission Date: 20120608
  Serious: Yes (Death, Other)
  Sender: FDA-Public Use
  Company Number: JP-JNJFOC-20120205366

PATIENT
  Age: 64 Year
  Sex: Female

DRUGS (2)
  1. FENTANYL-100 [Suspect]
     Route: 062
     Dates: end: 20120128
  2. FENTANYL-100 [Suspect]
     Indication: PAIN
     Route: 062
     Dates: start: 20100927

REACTIONS (2)
  - LOSS OF CONSCIOUSNESS [None]
  - INTERSTITIAL LUNG DISEASE [None]
